FAERS Safety Report 4323228-8 (Version None)
Quarter: 2004Q1

REPORT INFORMATION
  Report Type: 
  Country: None (occurrence: None)
  Receive Date: 20040324
  Receipt Date: 20040324
  Transmission Date: 20041129
  Serious: Yes (Life-Threatening)
  Sender: FDA-Public Use
  Company Number: None

PATIENT
  Age: 23 Year
  Sex: Female
  Weight: 56.246 kg

DRUGS (1)
  1. WELLBUTRIN [Suspect]
     Indication: DEPRESSION
     Dosage: 150 MG 1 A DAY ORAL, 300 MG 1 A  DAY ORAL
     Route: 048
     Dates: start: 20030314, end: 20031121

REACTIONS (1)
  - SUICIDE ATTEMPT [None]
